FAERS Safety Report 8959916 (Version 1)
Quarter: 2012Q4

REPORT INFORMATION
  Report Type: 
  Country: DE (occurrence: DE)
  Receive Date: 20121211
  Receipt Date: 20121211
  Transmission Date: 20130627
  Serious: Yes (Other)
  Sender: FDA-Public Use
  Company Number: DE-TEVA-373737GER

PATIENT
  Age: 50 Year
  Sex: Male

DRUGS (9)
  1. CISPLATIN [Suspect]
     Indication: NON-SMALL CELL LUNG CANCER METASTATIC
     Dosage: 20% dose reduction following 1st cycle
     Route: 065
  2. CISPLATIN [Suspect]
     Indication: NON-SMALL CELL LUNG CANCER METASTATIC
     Dosage: 1st cycle: 75mg/m2 day 1, every 3 weeks
     Route: 065
  3. PEMETREXED [Suspect]
     Indication: NON-SMALL CELL LUNG CANCER METASTATIC
     Dosage: 20% dose reduction following 1st cycle
     Route: 065
  4. PEMETREXED [Suspect]
     Indication: NON-SMALL CELL LUNG CANCER METASTATIC
     Route: 065
  5. CYANOCOBALAMIN [Concomitant]
     Indication: SUPPLEMENTATION THERAPY
     Route: 065
  6. FOLIC ACID [Concomitant]
     Indication: SUPPLEMENTATION THERAPY
     Route: 065
  7. GRANISETRON [Concomitant]
     Indication: ANTIEMETIC SUPPORTIVE CARE
     Dosage: 3mg, day 1
     Route: 042
  8. DEXAMETHASONE [Concomitant]
     Indication: PROPHYLAXIS
     Dosage: 8 Milligram Daily;
     Route: 048
  9. ASPIRIN [Concomitant]
     Route: 065

REACTIONS (5)
  - Toxic epidermal necrolysis [Recovered/Resolved]
  - Mucosal inflammation [Unknown]
  - Constipation [Unknown]
  - Weight decreased [Unknown]
  - General physical health deterioration [Recovered/Resolved]
